FAERS Safety Report 4938447-7 (Version None)
Quarter: 2006Q1

REPORT INFORMATION
  Report Type: 
  Country: None (occurrence: None)
  Receive Date: 20060302
  Receipt Date: 20060215
  Transmission Date: 20060701
  Serious: Yes (Hospitalization)
  Sender: FDA-Public Use
  Company Number: FR200602003178

PATIENT
  Age: 71 Year
  Sex: Female

DRUGS (14)
  1. FORTEO [Suspect]
     Indication: OSTEOPOROSIS
     Dosage: 20 UG, DAILY (1/D), SUBCUTANEOUS
     Route: 058
     Dates: start: 20050218
  2. FORSTEO  PEN (FORSTEO PEN), [Concomitant]
  3. PEN, DISPOSABLE [Concomitant]
  4. ACARBOSE [Concomitant]
  5. POTASSIUM CHLORIDE [Concomitant]
  6. CORTANCYL  /FRA/(PREDNISONE) [Concomitant]
  7. PROZAC (FLUOXETRINE HYDROCHLORIDE ) [Concomitant]
  8. URBANYL /FRA (CLOBAZAM) [Concomitant]
  9. TANAKAN (GINKGO BILOBA EXTRACT) [Concomitant]
  10. TACHIDOL (CODEINE PHOSPHATE, PARACETAMOL) [Concomitant]
  11. GEMFIBROZIL [Concomitant]
  12. LANSOPRAZOLE [Concomitant]
  13. SALAZOPYRINE (SULFASALAZINE)(CALCIUM CARBONATE) [Concomitant]
  14. FIXICAL (CALCIUM CARBONATE) [Concomitant]

REACTIONS (1)
  - HYPOGLYCAEMIA [None]
